FAERS Safety Report 4706962-7 (Version None)
Quarter: 2005Q2

REPORT INFORMATION
  Report Type: 
  Country: None (occurrence: None)
  Receive Date: 20050630
  Receipt Date: 20050617
  Transmission Date: 20051028
  Serious: Yes (Other)
  Sender: FDA-Public Use
  Company Number: 2005089960

PATIENT
  Age: 56 Year
  Sex: Female
  Weight: 68.0396 kg

DRUGS (1)
  1. NATURAL CITRUS LISTERINE (MENTHOL, METHYL SALICYLATE, EUCALYPTOL, THYM [Suspect]
     Indication: DENTAL DISORDER PROPHYLAXIS
     Dosage: 1 CAPFUL TWICE DAILY, ORAL TOPICAL
     Dates: start: 20050506, end: 20050512

REACTIONS (2)
  - PARAESTHESIA [None]
  - SWOLLEN TONGUE [None]
